FAERS Safety Report 7361562-8 (Version None)
Quarter: 2011Q1

REPORT INFORMATION
  Report Type: 
  Country: None (occurrence: None)
  Receive Date: 20110315
  Receipt Date: 20110315
  Transmission Date: 20110831
  Serious: Yes (Hospitalization)
  Sender: FDA-Public Use
  Company Number: None

PATIENT
  Age: 17 Year
  Sex: Female
  Weight: 50.2 kg

DRUGS (1)
  1. FELBAMATE [Suspect]
     Indication: EPILEPSY
     Dosage: 1200MG EVERY PM AND HS PO, 900MG EVERY AM PO
     Route: 048

REACTIONS (4)
  - PYREXIA [None]
  - NEPHROLITHIASIS [None]
  - DYSURIA [None]
  - HYPOPITUITARISM [None]
